FAERS Safety Report 20346906 (Version 2)
Quarter: 2022Q1

REPORT INFORMATION
  Report Type: Spontaneous
  Country: IT (occurrence: IT)
  Receive Date: 20220118
  Receipt Date: 20220318
  Transmission Date: 20220423
  Serious: Yes (Other)
  Sender: FDA-Public Use
  Company Number: IT-ALLERGAN-2202313US

PATIENT
  Sex: Male

DRUGS (1)
  1. SILODOSIN [Suspect]
     Active Substance: SILODOSIN
     Indication: Dysuria
     Dosage: 4 MG, QD
     Route: 048
     Dates: start: 20201014, end: 20210120

REACTIONS (1)
  - Nasal polyps [Recovered/Resolved]

NARRATIVE: CASE EVENT DATE: 20201014
